FAERS Safety Report 21188759 (Version 1)
Quarter: 2022Q3

REPORT INFORMATION
  Report Type: Report from Study
  Country: US (occurrence: US)
  Receive Date: 20220809
  Receipt Date: 20220809
  Transmission Date: 20221026
  Serious: No
  Sender: FDA-Public Use
  Company Number: US-BIOVITRUM-2022US06031

PATIENT
  Age: 5 Year
  Sex: Female

DRUGS (2)
  1. KINERET [Suspect]
     Active Substance: ANAKINRA
     Indication: Still^s disease
     Dates: start: 20201015
  2. KINERET [Suspect]
     Active Substance: ANAKINRA
     Dates: start: 20211015

REACTIONS (6)
  - Seasonal allergy [Unknown]
  - Regressive behaviour [Unknown]
  - Illness [Unknown]
  - Foot fracture [Unknown]
  - Influenza [Unknown]
  - Off label use [Not Recovered/Not Resolved]

NARRATIVE: CASE EVENT DATE: 20201001
